FAERS Safety Report 18193644 (Version 1)
Quarter: 2020Q3

REPORT INFORMATION
  Report Type: Spontaneous
  Country: DE (occurrence: DE)
  Receive Date: 20200825
  Receipt Date: 20200825
  Transmission Date: 20201103
  Serious: Yes (Disabling, Other)
  Sender: FDA-Public Use
  Company Number: DE-PFIZER INC-2020325138

PATIENT
  Age: 54 Year
  Sex: Male
  Weight: 90 kg

DRUGS (8)
  1. PREGABALIN. [Suspect]
     Active Substance: PREGABALIN
     Indication: NERVE INJURY
     Dosage: 75 MG, 3X/DAY (1?1?1?0, 3X DAILY) FOR SEVERAL MONTHS
     Route: 048
     Dates: start: 201812, end: 201902
  2. NOVAMINSULFON [Concomitant]
     Active Substance: METAMIZOLE
     Indication: SPINAL FUSION SURGERY
  3. TILIDIN STADA [Concomitant]
     Indication: SPINAL DECOMPRESSION
     Dosage: 3 DF, 1X/DAY (1?0?2?0)
     Dates: start: 201812, end: 201902
  4. OXYCODON [Concomitant]
     Active Substance: OXYCODONE
     Dosage: 5 MG, 1X/DAY
     Dates: start: 201812, end: 201902
  5. NOVAMINSULFON [Concomitant]
     Active Substance: METAMIZOLE
     Indication: SPINAL DECOMPRESSION
     Dosage: 1000 MG, 4X/DAY (FREQUENCY: 6 H; 2?2?2?2)
     Dates: start: 201812, end: 201902
  6. PREGABALIN. [Suspect]
     Active Substance: PREGABALIN
     Indication: INTERVERTEBRAL DISC OPERATION
  7. TILIDIN STADA [Concomitant]
     Indication: SPINAL FUSION SURGERY
  8. PREGABALIN. [Suspect]
     Active Substance: PREGABALIN
     Indication: LUMBAR RADICULOPATHY
     Dosage: 225 MG, 1X/DAY
     Route: 048
     Dates: start: 201812, end: 201902

REACTIONS (1)
  - Dupuytren^s contracture [Not Recovered/Not Resolved]

NARRATIVE: CASE EVENT DATE: 201909
